FAERS Safety Report 5257165-1 (Version None)
Quarter: 2007Q1

REPORT INFORMATION
  Report Type: 
  Country: None (occurrence: None)
  Receive Date: 20070307
  Receipt Date: 20070226
  Transmission Date: 20070707
  Serious: Yes (Hospitalization)
  Sender: FDA-Public Use
  Company Number: JP-ROCHE-484839

PATIENT
  Age: 13 Year
  Sex: Male

DRUGS (2)
  1. TAMIFLU [Suspect]
     Dosage: DRUG REPORTED AS TAMIFLU CAPSULE.
     Route: 048
     Dates: start: 20070223, end: 20070225
  2. CALONAL [Concomitant]

REACTIONS (1)
  - HEPATIC FUNCTION ABNORMAL [None]
